FAERS Safety Report 6475648-3 (Version None)
Quarter: 2009Q4

REPORT INFORMATION
  Report Type: 
  Country: None (occurrence: None)
  Receive Date: 20091204
  Receipt Date: 20091120
  Transmission Date: 20100525
  Serious: Yes (Hospitalization)
  Sender: FDA-Public Use
  Company Number: NL-NAPPMUNDI-GBR-2009-0005610

PATIENT
  Sex: Male
  Weight: 56.7 kg

DRUGS (5)
  1. PALLADONE [Suspect]
     Indication: PAIN
     Dosage: UNK
     Dates: start: 20090518
  2. RAD001 [Suspect]
     Indication: METASTATIC RENAL CELL CARCINOMA
     Dosage: 10 MG, DAILY
     Route: 048
     Dates: start: 20090528, end: 20090730
  3. ETHANOL [Suspect]
     Indication: DRUG USE FOR UNKNOWN INDICATION
     Route: 065
  4. METHADONE [Suspect]
     Indication: DRUG USE FOR UNKNOWN INDICATION
     Dosage: UNK
     Route: 065
     Dates: start: 20090721
  5. AMITRIPTYLINE [Concomitant]
     Indication: DRUG USE FOR UNKNOWN INDICATION
     Dosage: UNK
     Route: 065

REACTIONS (4)
  - AGGRESSION [None]
  - ANXIETY [None]
  - DELIRIUM [None]
  - MALIGNANT NEOPLASM PROGRESSION [None]
